FAERS Safety Report 11599818 (Version 1)
Quarter: 2015Q4

REPORT INFORMATION
  Report Type: Report from Study
  Country: US (occurrence: US)
  Receive Date: 20151006
  Receipt Date: 20151006
  Transmission Date: 20160304
  Serious: Yes (Hospitalization)
  Sender: FDA-Public Use
  Company Number: PHEH2015US018951

PATIENT
  Age: 22 Year
  Sex: Female

DRUGS (1)
  1. ILARIS [Suspect]
     Active Substance: CANAKINUMAB
     Indication: CRYOPYRIN ASSOCIATED PERIODIC SYNDROME
     Dosage: 150 MG, ONCE EVERY 28 DAYS
     Route: 058

REACTIONS (2)
  - Condition aggravated [Recovering/Resolving]
  - Cryopyrin associated periodic syndrome [Recovering/Resolving]

NARRATIVE: CASE EVENT DATE: 20150917
